FAERS Safety Report 5587809-6 (Version None)
Quarter: 2007Q4

REPORT INFORMATION
  Report Type: 
  Country: None (occurrence: None)
  Receive Date: 20071211
  Receipt Date: 20070918
  Transmission Date: 20080405
  Serious: No
  Sender: FDA-Public Use
  Company Number: 002#2#2007-00191

PATIENT
  Age: 72 Year
  Sex: Male
  Weight: 82 kg

DRUGS (5)
  1. NEUPRO [Suspect]
     Indication: PARKINSON'S DISEASE
     Dosage: 4MG/24H, 1 IN 1 TRANSDERMAL; SEE IMAGE
     Route: 062
     Dates: start: 20070817, end: 20070831
  2. OMEPRAZOLE [Concomitant]
  3. SINEMET [Concomitant]
  4. COMPTONS HEALING OIL SOL [Concomitant]
  5. MIRAPEX [Concomitant]

REACTIONS (3)
  - AGITATION [None]
  - DEPRESSION [None]
  - DRUG INEFFECTIVE [None]
